FAERS Safety Report 18232414 (Version 1)
Quarter: 2020Q3

REPORT INFORMATION
  Report Type: Spontaneous
  Country: US (occurrence: US)
  Receive Date: 20200904
  Receipt Date: 20200904
  Transmission Date: 20201103
  Serious: No
  Sender: FDA-Public Use
  Company Number: None

PATIENT
  Sex: Male

DRUGS (1)
  1. COPAXONE [Suspect]
     Active Substance: GLATIRAMER ACETATE
     Indication: MULTIPLE SCLEROSIS
     Route: 058
     Dates: start: 20200629

REACTIONS (9)
  - Asthenia [None]
  - Dizziness [None]
  - Chills [None]
  - Chest pain [None]
  - Injection site erythema [None]
  - Diarrhoea [None]
  - Cough [None]
  - Myalgia [None]
  - Hyperhidrosis [None]
